FAERS Safety Report 4978757-0 (Version None)
Quarter: 2006Q2

REPORT INFORMATION
  Report Type: 
  Country: None (occurrence: None)
  Receive Date: 20060417
  Receipt Date: 20060406
  Transmission Date: 20061013
  Serious: Yes (Death, Hospitalization)
  Sender: FDA-Public Use
  Company Number: GXKR2006GB01367

PATIENT
  Age: 44 Year
  Sex: Male

DRUGS (2)
  1. WARFARIN SODIUM [Suspect]
     Indication: DEEP VEIN THROMBOSIS
     Dosage: SEE IMAGE
  2. ENOXAPARIN SODIUM (ENOXAPARIN SODIUM, HEPARIN-FRACTION, SODIUM SALT) [Concomitant]

REACTIONS (6)
  - BLISTER [None]
  - BLOOD CREATINE PHOSPHOKINASE INCREASED [None]
  - C-REACTIVE PROTEIN INCREASED [None]
  - INTERNATIONAL NORMALISED RATIO INCREASED [None]
  - MESENTERIC ARTERY THROMBOSIS [None]
  - SKIN NECROSIS [None]
